FAERS Safety Report 9224222 (Version 1)
Quarter: 2013Q2

REPORT INFORMATION
  Report Type: Spontaneous
  Country: US (occurrence: US)
  Receive Date: 20130411
  Receipt Date: 20130411
  Transmission Date: 20140414
  Serious: No
  Sender: FDA-Public Use
  Company Number: US-PFIZER INC-2013111371

PATIENT
  Sex: Male
  Weight: 88.44 kg

DRUGS (7)
  1. SUTENT [Suspect]
     Dosage: UNK
  2. AMARYL [Concomitant]
     Dosage: UNK
  3. AVODART [Concomitant]
     Dosage: UNK
  4. FLOMAX [Concomitant]
     Dosage: UNK
  5. LOTREL [Concomitant]
     Dosage: UNK
  6. PREVACID [Concomitant]
     Dosage: UNK
  7. HYDROCHLOROTHIAZIDE [Concomitant]
     Dosage: UNK

REACTIONS (1)
  - Pain in extremity [Unknown]
